FAERS Safety Report 11026803 (Version 2)
Quarter: 2015Q2

REPORT INFORMATION
  Report Type: Spontaneous
  Country: US (occurrence: US)
  Receive Date: 20150414
  Receipt Date: 20150525
  Transmission Date: 20150821
  Serious: No
  Sender: FDA-Public Use
  Company Number: US-JNJFOC-20131202538

PATIENT
  Sex: Female

DRUGS (3)
  1. SOFOSBUVIR [Interacting]
     Active Substance: SOFOSBUVIR
     Indication: PRODUCT USED FOR UNKNOWN INDICATION
     Dosage: FOR 7 DAYS (DAYS 8-14; 2ND CYCLE)
     Route: 065
  2. ORTHO TRI CYCLEN LO [Suspect]
     Active Substance: ETHINYL ESTRADIOL\NORGESTIMATE
     Indication: PRODUCT USED FOR UNKNOWN INDICATION
     Dosage: FOR 3 SEQUENTIAL CYCLES
     Route: 048
  3. INVESTIGATIONAL DRUG [Interacting]
     Active Substance: INVESTIGATIONAL PRODUCT
     Indication: PRODUCT USED FOR UNKNOWN INDICATION
     Dosage: FOR 14 DAYS (DAYS 1-14; 3RD CYCLE).
     Route: 065

REACTIONS (6)
  - Nausea [Unknown]
  - Insomnia [Unknown]
  - Menstruation delayed [Unknown]
  - Headache [Unknown]
  - Blood urine present [Unknown]
  - Drug interaction [Unknown]
